FAERS Safety Report 15533055 (Version 2)
Quarter: 2019Q2

REPORT INFORMATION
  Report Type: Spontaneous
  Country: FR (occurrence: FR)
  Receive Date: 20181019
  Receipt Date: 20190605
  Transmission Date: 20190711
  Serious: Yes (Hospitalization)
  Sender: FDA-Public Use
  Company Number: FR-JNJFOC-20181021190

PATIENT
  Age: 35 Year
  Sex: Male
  Weight: 85 kg

DRUGS (3)
  1. STELARA [Suspect]
     Active Substance: USTEKINUMAB
     Indication: PSORIASIS
     Route: 042
     Dates: start: 2010, end: 2018
  2. LANTUS [Concomitant]
     Active Substance: INSULIN GLARGINE
     Route: 058
  3. METFORMINE [Concomitant]
     Active Substance: METFORMIN HYDROCHLORIDE
     Route: 048

REACTIONS (4)
  - Dysphonia [Recovering/Resolving]
  - Myocarditis [Recovering/Resolving]
  - Incorrect route of product administration [Unknown]
  - Off label use [Unknown]

NARRATIVE: CASE EVENT DATE: 2010
